FAERS Safety Report 5130262-7 (Version None)
Quarter: 2006Q4

REPORT INFORMATION
  Report Type: 
  Country: None (occurrence: None)
  Receive Date: 20061018
  Receipt Date: 20061018
  Transmission Date: 20070319
  Serious: Yes (Hospitalization)
  Sender: FDA-Public Use
  Company Number: None

PATIENT
  Sex: Female
  Weight: 77 kg

DRUGS (10)
  1. GLIADEL [Suspect]
     Indication: GLIOBLASTOMA MULTIFORME
     Dosage: 7.L7 MG PER WAFER ONCE IV
     Route: 042
     Dates: start: 20060711
  2. O6-BENZYLGUANINE (O6BG) [Suspect]
     Indication: GLIOBLASTOMA MULTIFORME
     Dosage: 30 MG/M2 INFUSION X 5 DAYS IV
     Route: 042
     Dates: start: 20060711, end: 20060715
  3. LEXAPRO [Concomitant]
  4. PROTONIX [Concomitant]
  5. SODIUM CHLORIDE [Concomitant]
  6. DECADRON [Concomitant]
  7. TYLENOL [Concomitant]
  8. ATIVAN [Concomitant]
  9. VALPROIC ACID [Concomitant]
  10. SLIDING-SCALE INSULIN [Concomitant]

REACTIONS (8)
  - DEEP VEIN THROMBOSIS [None]
  - HAEMOGLOBIN ABNORMAL [None]
  - HYPONATRAEMIA [None]
  - INCISION SITE COMPLICATION [None]
  - INTRACRANIAL HYPOTENSION [None]
  - PYREXIA [None]
  - VENOUS THROMBOSIS [None]
  - WOUND COMPLICATION [None]
